FAERS Safety Report 9966511 (Version 1)
Quarter: 2014Q1

REPORT INFORMATION
  Report Type: Report from Study
  Country: US (occurrence: US)
  Receive Date: 20140305
  Receipt Date: 20140305
  Transmission Date: 20141002
  Serious: No
  Sender: FDA-Public Use
  Company Number: US-ABBVIE-13P-163-1120419-00

PATIENT
  Sex: Male

DRUGS (7)
  1. HUMIRA [Suspect]
     Indication: COLITIS ULCERATIVE
     Dates: start: 20130504
  2. IMURAN [Concomitant]
     Indication: COLITIS ULCERATIVE
     Dosage: 50 MG DAILY
  3. LIALDA [Concomitant]
     Indication: PRODUCT USED FOR UNKNOWN INDICATION
     Dosage: 2MG DAILY
  4. CO Q10 [Concomitant]
     Indication: NUTRITIONAL SUPPLEMENTATION
     Dosage: 200MG DAILY
  5. TUMERIC [Concomitant]
     Indication: NUTRITIONAL SUPPLEMENTATION
     Dosage: 400MG DAILY
  6. PROBIOTIC [Concomitant]
     Indication: NUTRITIONAL SUPPLEMENTATION
  7. TRUE BIOTICS [Concomitant]
     Indication: NUTRITIONAL SUPPLEMENTATION
     Dosage: ONE A DAY

REACTIONS (3)
  - Lymphadenopathy [Not Recovered/Not Resolved]
  - Defaecation urgency [Not Recovered/Not Resolved]
  - Abdominal pain [Not Recovered/Not Resolved]
